FAERS Safety Report 6518915-7 (Version None)
Quarter: 2009Q4

REPORT INFORMATION
  Report Type: 
  Country: None (occurrence: None)
  Receive Date: 20091228
  Receipt Date: 20091216
  Transmission Date: 20100525
  Serious: Yes (Hospitalization)
  Sender: FDA-Public Use
  Company Number: FR-BRISTOL-MYERS SQUIBB COMPANY-14901169

PATIENT
  Age: 60 Year
  Sex: Male

DRUGS (9)
  1. APROVEL TABS [Suspect]
     Indication: HYPERTENSION
     Dosage: 150 MG
     Route: 048
     Dates: start: 20091006, end: 20091120
  2. JANUVIA [Suspect]
     Indication: TYPE 2 DIABETES MELLITUS
     Dosage: 1DF-1 TABLET DAILY 100 MG
     Route: 048
     Dates: start: 20091006
  3. PRAVASTATINE BIOGARAN [Suspect]
     Indication: HYPERCHOLESTEROLAEMIA
     Dates: start: 20090301, end: 20091120
  4. RULID [Suspect]
     Indication: BRONCHITIS
     Dosage: TABLETS
  5. EXOMUC [Suspect]
     Indication: BRONCHITIS
     Route: 048
     Dates: start: 20091113, end: 20091121
  6. PERMIXON [Concomitant]
     Dates: start: 20090301
  7. ALFUZOSIN HCL [Concomitant]
     Dates: start: 20090301
  8. DIOSMIN [Concomitant]
     Dosage: DIOSMINE TEVA
     Dates: start: 20090301
  9. MACROGOL [Concomitant]
     Dosage: MACROGOL BIOGARAN
     Dates: start: 20090301

REACTIONS (5)
  - CHOLESTASIS [None]
  - CYTOLYTIC HEPATITIS [None]
  - PNEUMONIA [None]
  - RENAL FAILURE [None]
  - RESPIRATORY FAILURE [None]
